FAERS Safety Report 10160595 (Version 4)
Quarter: 2014Q2

REPORT INFORMATION
  Report Type: Spontaneous
  Country: AU (occurrence: AU)
  Receive Date: 20140508
  Receipt Date: 20140624
  Transmission Date: 20141212
  Serious: Yes (Other)
  Sender: FDA-Public Use
  Company Number: AU-BAYER-2014-062148

PATIENT
  Sex: Female

DRUGS (1)
  1. MIRENA [Suspect]
     Dosage: DAILY DOSE 20 ?G
     Route: 015
     Dates: start: 201309

REACTIONS (22)
  - Device dislocation [None]
  - Hypertension [None]
  - Hyperthyroidism [None]
  - Abdominal pain lower [None]
  - Pain [None]
  - Vaginal haemorrhage [Unknown]
  - Depressed mood [None]
  - Anxiety [None]
  - Malaise [None]
  - Back pain [Unknown]
  - Fatigue [None]
  - Hair texture abnormal [None]
  - Dry skin [None]
  - Dry eye [None]
  - Anhedonia [None]
  - Insomnia [None]
  - Nasal congestion [None]
  - Loss of libido [None]
  - Disturbance in attention [None]
  - Feeling abnormal [None]
  - Feeling abnormal [None]
  - Vaginal haemorrhage [None]
